FAERS Safety Report 11139214 (Version 1)
Quarter: 2015Q2

REPORT INFORMATION
  Report Type: Spontaneous
  Country: AT (occurrence: None)
  Receive Date: 20150522
  Receipt Date: 20150522
  Transmission Date: 20150821
  Serious: No
  Sender: FDA-Public Use
  Company Number: AT-LHC-2015052

PATIENT
  Age: 79 Year
  Sex: Female

DRUGS (3)
  1. CONOXIA, MEDIZINISCHES GAS (OXYGEN) (GAS FOR INHALATION) (VERUM ) [Suspect]
     Active Substance: OXYGEN
     Indication: PULMONARY CONGESTION
     Dosage: 1 L/MIN, INHALATION
     Route: 055
     Dates: start: 20150429
  2. CONOXIA, MEDIZINISCHES GAS (OXYGEN) (GAS FOR INHALATION) (VERUM ) [Suspect]
     Active Substance: OXYGEN
     Indication: METASTASES TO LUNG
     Dosage: 1 L/MIN, INHALATION
     Route: 055
     Dates: start: 20150429
  3. CONOXIA, MEDIZINISCHES GAS (OXYGEN) (GAS FOR INHALATION) (VERUM ) [Suspect]
     Active Substance: OXYGEN
     Indication: CARDIAC DISORDER
     Dosage: 1 L/MIN, INHALATION
     Route: 055
     Dates: start: 20150429

REACTIONS (4)
  - Cough [None]
  - Device issue [None]
  - Sneezing [None]
  - Product odour abnormal [None]

NARRATIVE: CASE EVENT DATE: 20150502
